FAERS Safety Report 23047020 (Version 1)
Quarter: 2023Q4

REPORT INFORMATION
  Report Type: Spontaneous
  Country: IT (occurrence: IT)
  Receive Date: 20231009
  Receipt Date: 20231009
  Transmission Date: 20240109
  Serious: Yes (Other)
  Sender: FDA-Public Use
  Company Number: None

PATIENT
  Age: 42 Year
  Sex: Female

DRUGS (2)
  1. CIPRALEX [Suspect]
     Active Substance: ESCITALOPRAM OXALATE
     Indication: Generalised anxiety disorder
     Dosage: OVERDOSE NOS: 80MG UNIT DOSE?THE TOTAL DOSE IS 80 DROPS?(LA DOSE TOTALE ? DI 80 GOCCE)
     Route: 048
     Dates: start: 20230624, end: 20230624
  2. OLMESARTAN MEDOXOMIL [Suspect]
     Active Substance: OLMESARTAN MEDOXOMIL
     Indication: Hypertension
     Dosage: THE TOTAL DOSE TAKEN IS EQUAL TO 5 OLMESARTAN 20 MG TABLETS?(LA DOSE TOTALE ASSUNTA ? PARI A 5 COMPR
     Route: 048
     Dates: start: 20230624, end: 20230624

REACTIONS (6)
  - Drug abuse [Recovered/Resolved with Sequelae]
  - Vertigo [Recovering/Resolving]
  - Abdominal pain [Recovering/Resolving]
  - Toxicity to various agents [Recovering/Resolving]
  - Overdose [Unknown]
  - Nausea [Recovering/Resolving]

NARRATIVE: CASE EVENT DATE: 20230624
